FAERS Safety Report 25067448 (Version 1)
Quarter: 2025Q1

REPORT INFORMATION
  Report Type: Spontaneous
  Country: AU (occurrence: None)
  Receive Date: 20250312
  Receipt Date: 20250312
  Transmission Date: 20250409
  Serious: Yes (Other)
  Sender: ORION
  Company Number: AU-PFIZER INC-PV202500027741

PATIENT
  Age: 14 Year
  Sex: Female

DRUGS (3)
  1. METHOTREXATE [Suspect]
     Active Substance: METHOTREXATE
     Indication: Gastrointestinal disorder
  2. MESALAMINE [Suspect]
     Active Substance: MESALAMINE
     Indication: Pancreatitis
  3. AZATHIOPRINE [Suspect]
     Active Substance: AZATHIOPRINE
     Indication: Pancreatitis

REACTIONS (5)
  - Enterovesical fistula [Unknown]
  - Intestinal fistula [Unknown]
  - Product use in unapproved indication [Unknown]
  - Pain [Unknown]
  - Urinary tract disorder [Unknown]
